FAERS Safety Report 24266291 (Version 2)
Quarter: 2024Q3

REPORT INFORMATION
  Report Type: Spontaneous
  Country: US (occurrence: US)
  Receive Date: 20240830
  Receipt Date: 20240906
  Transmission Date: 20241016
  Serious: No
  Sender: Haleon PLC
  Company Number: US-HALEON-2194312

PATIENT

DRUGS (1)
  1. NICODERM CQ [Suspect]
     Active Substance: NICOTINE
     Indication: Smoking cessation therapy
     Dosage: EXPDATE:202702

REACTIONS (4)
  - Skin reaction [Recovered/Resolved]
  - Rash [Recovered/Resolved]
  - Scratch [Unknown]
  - Erythema [Unknown]
